FAERS Safety Report 5794179-7 (Version None)
Quarter: 2008Q2

REPORT INFORMATION
  Report Type: 
  Country: None (occurrence: None)
  Receive Date: 20080627
  Receipt Date: 20080617
  Transmission Date: 20081010
  Serious: Yes (Hospitalization)
  Sender: FDA-Public Use
  Company Number: ES-PFIZER INC-2008050381

PATIENT
  Age: 56 Year
  Sex: Female

DRUGS (7)
  1. CARDYL [Suspect]
  2. AMERIDE [Suspect]
     Dosage: TEXT:5/50MG
  3. DEPAMIDE [Suspect]
  4. OXCARBAZEPINE [Suspect]
     Indication: DEPRESSION
     Route: 048
     Dates: start: 20070401, end: 20080301
  5. IDALPREM [Suspect]
     Dates: start: 20071001, end: 20080401
  6. SEROQUEL [Suspect]
     Dates: start: 20071001, end: 20080401
  7. XENICAL [Suspect]

REACTIONS (2)
  - DEPRESSED LEVEL OF CONSCIOUSNESS [None]
  - HYPONATRAEMIA [None]
